FAERS Safety Report 12589089 (Version 1)
Quarter: 2016Q3

REPORT INFORMATION
  Report Type: Spontaneous
  Country: US (occurrence: US)
  Receive Date: 20160725
  Receipt Date: 20160725
  Transmission Date: 20161109
  Serious: No
  Sender: FDA-Public Use
  Company Number: US-JNJFOC-20160708056

PATIENT
  Age: 55 Year
  Sex: Male
  Weight: 64.41 kg

DRUGS (3)
  1. CHILDRENS ZYRTEC ALLERGY [Suspect]
     Active Substance: CETIRIZINE HYDROCHLORIDE
     Indication: RHINORRHOEA
     Dosage: SINCE AROUND 15-JUN-2016 OR 16-JUN-2016
     Route: 048
     Dates: start: 201606, end: 20160707
  2. AMLODIPINE [Concomitant]
     Active Substance: AMLODIPINE BESYLATE
     Indication: HYPERTENSION
     Dosage: YEARS
     Route: 065
  3. CHILDRENS ZYRTEC ALLERGY [Suspect]
     Active Substance: CETIRIZINE HYDROCHLORIDE
     Indication: UPPER-AIRWAY COUGH SYNDROME
     Dosage: SINCE AROUND 15-JUN-2016 OR 16-JUN-2016
     Route: 048
     Dates: start: 201606, end: 20160707

REACTIONS (1)
  - Drug ineffective [Unknown]
